FAERS Safety Report 21221085 (Version 2)
Quarter: 2022Q3

REPORT INFORMATION
  Report Type: Spontaneous
  Country: US (occurrence: US)
  Receive Date: 20220817
  Receipt Date: 20220912
  Transmission Date: 20221027
  Serious: No
  Sender: FDA-Public Use
  Company Number: US-BIOVITRUM-2022US09583

PATIENT
  Age: 0 Year
  Sex: Male

DRUGS (2)
  1. SYNAGIS [Suspect]
     Active Substance: PALIVIZUMAB
     Indication: Premature baby
     Dosage: 129.54
     Dates: start: 20220123
  2. SYNAGIS [Suspect]
     Active Substance: PALIVIZUMAB
     Dosage: 129.54
     Dates: start: 20220712

REACTIONS (4)
  - COVID-19 [Unknown]
  - Nasal congestion [Unknown]
  - Cough [Unknown]
  - Pyrexia [Unknown]

NARRATIVE: CASE EVENT DATE: 20220806
